FAERS Safety Report 23517547 (Version 2)
Quarter: 2024Q1

REPORT INFORMATION
  Report Type: Spontaneous
  Country: US (occurrence: US)
  Receive Date: 20240213
  Receipt Date: 20240313
  Transmission Date: 20240410
  Serious: Yes (Other)
  Sender: FDA-Public Use
  Company Number: US-BRISTOL-MYERS SQUIBB COMPANY-2024-020676

PATIENT
  Age: 78 Year
  Sex: Male

DRUGS (7)
  1. ELIQUIS [Suspect]
     Active Substance: APIXABAN
     Indication: Product used for unknown indication
     Dates: end: 20230825
  2. XTANDI [Suspect]
     Active Substance: ENZALUTAMIDE
     Indication: Prostate cancer
     Route: 048
     Dates: start: 202311, end: 202312
  3. XTANDI [Suspect]
     Active Substance: ENZALUTAMIDE
     Route: 048
     Dates: start: 202312
  4. XTANDI [Suspect]
     Active Substance: ENZALUTAMIDE
     Route: 048
  5. METFORMIN [Suspect]
     Active Substance: METFORMIN HYDROCHLORIDE
     Indication: Diabetes mellitus
     Dates: end: 202308
  6. IRON [Suspect]
     Active Substance: IRON
     Indication: Product used for unknown indication
  7. IRON [Suspect]
     Active Substance: IRON
     Dosage: LOWERED DOSAGE TO EVERY OTHER DAY

REACTIONS (5)
  - Internal haemorrhage [Not Recovered/Not Resolved]
  - Haematochezia [Unknown]
  - Faeces discoloured [Not Recovered/Not Resolved]
  - Heart rate decreased [Recovering/Resolving]
  - Nausea [Recovered/Resolved]

NARRATIVE: CASE EVENT DATE: 20230825
